FAERS Safety Report 5706157-4 (Version None)
Quarter: 2008Q2

REPORT INFORMATION
  Report Type: 
  Country: None (occurrence: None)
  Receive Date: 20080415
  Receipt Date: 20080410
  Transmission Date: 20081010
  Serious: Yes (Hospitalization)
  Sender: FDA-Public Use
  Company Number: US-ASTRAZENECA-2008UW07294

PATIENT
  Age: 63 Year
  Sex: Female
  Weight: 35.4 kg

DRUGS (11)
  1. PULMICORT FLEXHALER [Suspect]
     Indication: ASTHMA
     Dosage: 180 UG ONE INHALATION TWICE A DAY
     Route: 055
     Dates: start: 20080301
  2. PULMICORT FLEXHALER [Suspect]
     Indication: CHRONIC OBSTRUCTIVE PULMONARY DISEASE
     Dosage: 180 UG ONE INHALATION TWICE A DAY
     Route: 055
     Dates: start: 20080301
  3. PULMICORT FLEXHALER [Suspect]
     Dosage: 180 UG ONE INHALATION TWICE A DAY
     Route: 055
     Dates: start: 20080301
  4. PULMICORT FLEXHALER [Suspect]
     Dosage: 180 UG ONE INHALATION TWICE A DAY
     Route: 055
     Dates: start: 20080301
  5. MAXAIR [Concomitant]
  6. PLAVIX [Concomitant]
  7. LIPITOR [Concomitant]
  8. CARDIZEM [Concomitant]
  9. PREDNISONE [Concomitant]
  10. PREVACID [Concomitant]
  11. ATROVENT [Concomitant]

REACTIONS (3)
  - DYSPNOEA [None]
  - MUSCULAR WEAKNESS [None]
  - PAIN IN EXTREMITY [None]
